FAERS Safety Report 8041983 (Version 2)
Quarter: 2013Q2

REPORT INFORMATION
  Report Type: Report from Study
  Country: MX (occurrence: MX)
  Receive Date: 20110718
  Receipt Date: 20130611
  Transmission Date: 20140414
  Serious: Yes (Disabling, Other)
  Sender: FDA-Public Use
  Company Number: PHHY2011MX60302

PATIENT
  Age: 83 Year
  Sex: Male

DRUGS (2)
  1. ACLASTA [Suspect]
     Indication: OSTEOPOROSIS
     Dosage: 5 MG/100ML PER YEAR
     Route: 042
     Dates: start: 201003
  2. ACLASTA [Suspect]
     Dosage: 5 MG/100ML PER YEAR
     Route: 042
     Dates: start: 20110702

REACTIONS (4)
  - Abasia [Not Recovered/Not Resolved]
  - Dysstasia [Not Recovered/Not Resolved]
  - Limb discomfort [Unknown]
  - Paralysis [Not Recovered/Not Resolved]
